FAERS Safety Report 7892863-2 (Version None)
Quarter: 2011Q4

REPORT INFORMATION
  Report Type: 
  Country: None (occurrence: None)
  Receive Date: 20111104
  Receipt Date: 20111101
  Transmission Date: 20120403
  Serious: Yes (Death)
  Sender: FDA-Public Use
  Company Number: AU-B.I. PHARMACEUTICALS,INC./RIDGEFIELD-2011-AU-02028AU

PATIENT
  Age: 80 Year
  Sex: Male

DRUGS (4)
  1. PRADAXA [Suspect]
     Dosage: 220 MG
     Dates: start: 20110707
  2. COLGOUT [Concomitant]
  3. VITAMIN B-12 [Concomitant]
  4. SOTALOL HCL [Concomitant]

REACTIONS (2)
  - CHEST PAIN [None]
  - DEATH [None]
